FAERS Safety Report 15108383 (Version 9)
Quarter: 2023Q1

REPORT INFORMATION
  Report Type: Spontaneous
  Country: CA (occurrence: CA)
  Receive Date: 20180705
  Receipt Date: 20230130
  Transmission Date: 20230417
  Serious: Yes (Hospitalization, Other)
  Sender: FDA-Public Use
  Company Number: CA-BIOVITRUM-2018CA0722

PATIENT
  Age: 50 Year
  Sex: Female

DRUGS (18)
  1. ANAKINRA [Suspect]
     Active Substance: ANAKINRA
     Indication: Familial mediterranean fever
  2. ILARIS [Suspect]
     Active Substance: CANAKINUMAB
     Indication: Familial mediterranean fever
  3. ILARIS [Suspect]
     Active Substance: CANAKINUMAB
  4. ILARIS [Suspect]
     Active Substance: CANAKINUMAB
  5. ILARIS [Suspect]
     Active Substance: CANAKINUMAB
  6. ILARIS [Suspect]
     Active Substance: CANAKINUMAB
  7. ILARIS [Suspect]
     Active Substance: CANAKINUMAB
  8. ILARIS [Suspect]
     Active Substance: CANAKINUMAB
  9. ILARIS [Suspect]
     Active Substance: CANAKINUMAB
  10. ILARIS [Suspect]
     Active Substance: CANAKINUMAB
  11. ILARIS [Suspect]
     Active Substance: CANAKINUMAB
  12. ILARIS [Suspect]
     Active Substance: CANAKINUMAB
  13. ILARIS [Suspect]
     Active Substance: CANAKINUMAB
  14. ILARIS [Suspect]
     Active Substance: CANAKINUMAB
  15. ILARIS [Suspect]
     Active Substance: CANAKINUMAB
  16. ILARIS [Suspect]
     Active Substance: CANAKINUMAB
  17. ILARIS [Suspect]
     Active Substance: CANAKINUMAB
  18. CIPRO [Concomitant]
     Active Substance: CIPROFLOXACIN HYDROCHLORIDE
     Indication: Product used for unknown indication
     Dosage: 1 DOSAGE FORM

REACTIONS (41)
  - Familial mediterranean fever [Not Recovered/Not Resolved]
  - Diarrhoea [Not Recovered/Not Resolved]
  - Heart rate decreased [Not Recovered/Not Resolved]
  - Abdominal distension [Not Recovered/Not Resolved]
  - Abdominal pain [Not Recovered/Not Resolved]
  - Arthralgia [Not Recovered/Not Resolved]
  - Arthritis [Not Recovered/Not Resolved]
  - Blood pressure increased [Not Recovered/Not Resolved]
  - Eyelid thickening [Not Recovered/Not Resolved]
  - Feeling abnormal [Not Recovered/Not Resolved]
  - Pyrexia [Not Recovered/Not Resolved]
  - Therapeutic response decreased [Not Recovered/Not Resolved]
  - Amyloidosis [Not Recovered/Not Resolved]
  - Discomfort [Not Recovered/Not Resolved]
  - Feeling hot [Not Recovered/Not Resolved]
  - Fibromyalgia [Not Recovered/Not Resolved]
  - Lip pruritus [Not Recovered/Not Resolved]
  - Mouth swelling [Not Recovered/Not Resolved]
  - Pain in extremity [Not Recovered/Not Resolved]
  - Restless legs syndrome [Not Recovered/Not Resolved]
  - Secondary amyloidosis [Not Recovered/Not Resolved]
  - Abdominal pain upper [Not Recovered/Not Resolved]
  - Fatigue [Not Recovered/Not Resolved]
  - Hepatic cirrhosis [Not Recovered/Not Resolved]
  - Cough [Not Recovered/Not Resolved]
  - Stress [Not Recovered/Not Resolved]
  - Cataract [Not Recovered/Not Resolved]
  - SARS-CoV-2 test positive [Not Recovered/Not Resolved]
  - Acne [Not Recovered/Not Resolved]
  - Burning sensation [Not Recovered/Not Resolved]
  - Nausea [Not Recovered/Not Resolved]
  - Pain [Not Recovered/Not Resolved]
  - Visual impairment [Not Recovered/Not Resolved]
  - Eye infection [Not Recovered/Not Resolved]
  - Viral infection [Not Recovered/Not Resolved]
  - Kidney infection [Not Recovered/Not Resolved]
  - Urinary tract infection [Not Recovered/Not Resolved]
  - Pruritus [Not Recovered/Not Resolved]
  - Hypersensitivity [Not Recovered/Not Resolved]
  - Inappropriate schedule of product administration [Not Recovered/Not Resolved]
  - Wrong technique in product usage process [Not Recovered/Not Resolved]
